FAERS Safety Report 4551799-5 (Version None)
Quarter: 2005Q1

REPORT INFORMATION
  Report Type: 
  Country: None (occurrence: None)
  Receive Date: 20050111
  Receipt Date: 20041229
  Transmission Date: 20050727
  Serious: Yes (Hospitalization)
  Sender: FDA-Public Use
  Company Number: 2004120959

PATIENT
  Age: 48 Year
  Sex: Female

DRUGS (1)
  1. IRINOTECAN HYDROCHLORIDE             (IRINOTECAN HYDROCHLORIDE) [Suspect]
     Indication: CERVIX CARCINOMA
     Dosage: 40 MG/M*2 INTERMITTENT, INTRAVENOUS
     Route: 042
     Dates: start: 20030510, end: 20030628

REACTIONS (1)
  - INTERSTITIAL LUNG DISEASE [None]
